FAERS Safety Report 4610787-0 (Version None)
Quarter: 2005Q2

REPORT INFORMATION
  Report Type: 
  Country: None (occurrence: None)
  Receive Date: 20050223
  Receipt Date: 20031226
  Transmission Date: 20051028
  Serious: Yes (Disabling)
  Sender: FDA-Public Use
  Company Number: WAES0312USA02129

PATIENT
  Sex: Female
  Weight: 62.5964 kg

DRUGS (5)
  1. ZOCOR [Suspect]
     Indication: HYPERCHOLESTEROLAEMIA
     Dosage: 20 MG/ DAILY/ PO
     Route: 048
     Dates: start: 20011011, end: 20031217
  2. GLUCOTROL XL [Concomitant]
  3. MENTAX [Concomitant]
  4. MODURETIC 5-50 [Concomitant]
  5. VALISONE [Concomitant]

REACTIONS (1)
  - MYALGIA [None]
